FAERS Safety Report 4528083-9 (Version None)
Quarter: 2004Q4

REPORT INFORMATION
  Report Type: 
  Country: None (occurrence: None)
  Receive Date: 20041124
  Receipt Date: 20031107
  Transmission Date: 20050328
  Serious: Yes (Other)
  Sender: FDA-Public Use
  Company Number: 2003034522

PATIENT
  Age: 53 Year
  Sex: Male
  Weight: 90.7194 kg

DRUGS (5)
  1. TIKOSYN [Suspect]
     Indication: ATRIAL FIBRILLATION
     Dosage: 1000 MCG (BID), ORAL
     Route: 048
     Dates: start: 20030730
  2. METOPROLOL SUCCINATE [Suspect]
     Indication: HYPERTENSION
     Dosage: 25 MG (DAILY), ORAL
     Route: 048
     Dates: start: 20030801
  3. SERETIDE MITE (FLUTICASONE PROPIONATE, SALMETEROL XINAFOATE) [Suspect]
     Indication: ASTHMA
     Dosage: (BID), INHALATION
     Route: 055
     Dates: start: 20031106, end: 20031107
  4. WARFARIN SODIUM [Concomitant]
  5. ACETAMINOPHEN [Concomitant]

REACTIONS (14)
  - ASTHMA [None]
  - ATRIAL FIBRILLATION [None]
  - BLOOD PRESSURE INCREASED [None]
  - BODY HEIGHT DECREASED [None]
  - DRUG INTERACTION [None]
  - ELECTROCARDIOGRAM QT PROLONGED [None]
  - FEELING COLD [None]
  - HYPOAESTHESIA [None]
  - HYPOTENSION [None]
  - INSOMNIA [None]
  - NIGHT SWEATS [None]
  - POOR PERIPHERAL CIRCULATION [None]
  - PROTHROMBIN TIME SHORTENED [None]
  - WEIGHT DECREASED [None]
